FAERS Safety Report 10067970 (Version 1)
Quarter: 2014Q2

REPORT INFORMATION
  Report Type: Spontaneous
  Country: US (occurrence: US)
  Receive Date: 20140409
  Receipt Date: 20140409
  Transmission Date: 20141212
  Serious: Yes (Other)
  Sender: FDA-Public Use
  Company Number: US-PFIZER INC-2014095980

PATIENT
  Age: 56 Year
  Sex: Female

DRUGS (8)
  1. PRISTIQ [Suspect]
     Dosage: 50 MG, DAILY (FOR 1 WEEK)
  2. PRISTIQ [Suspect]
     Dosage: 100 MG, DAILY (2 TABLETS OF 50 MG)
  3. PROTONIX [Suspect]
     Dosage: 40 MG, 1X/DAY
     Route: 048
  4. PROPRANOLOL [Concomitant]
     Dosage: UNK
  5. FUROSEMIDE [Concomitant]
     Dosage: UNK
  6. HYDROCHLOROTHIAZIDE [Concomitant]
     Dosage: UNK
  7. LEVOTHYROXINE [Concomitant]
     Dosage: UNK
  8. RANITIDINE [Concomitant]
     Dosage: UNK

REACTIONS (2)
  - Cardiac failure congestive [Unknown]
  - Fall [Unknown]
